FAERS Safety Report 4338699-0 (Version None)
Quarter: 2004Q2

REPORT INFORMATION
  Report Type: 
  Country: None (occurrence: None)
  Receive Date: 20040414
  Receipt Date: 20040318
  Transmission Date: 20050107
  Serious: Yes (Hospitalization)
  Sender: FDA-Public Use
  Company Number: BE-BRISTOL-MYERS SQUIBB COMPANY-12536058

PATIENT
  Age: 85 Year
  Sex: Female

DRUGS (1)
  1. CEFEPIME FOR INJ [Suspect]
     Indication: LUNG INFECTION
     Route: 042
     Dates: start: 20040301, end: 20040315

REACTIONS (8)
  - APHASIA [None]
  - COGNITIVE DISORDER [None]
  - CONFUSIONAL STATE [None]
  - DISORIENTATION [None]
  - EPILEPSY [None]
  - MYOCLONUS [None]
  - NEUROLOGICAL EXAMINATION ABNORMAL [None]
  - RENAL FAILURE [None]
